FAERS Safety Report 24814995 (Version 2)
Quarter: 2025Q1

REPORT INFORMATION
  Report Type: Spontaneous
  Country: FR (occurrence: FR)
  Receive Date: 20250107
  Receipt Date: 20250115
  Transmission Date: 20250408
  Serious: Yes (Hospitalization, Other)
  Sender: CSL BEHRING
  Company Number: None

PATIENT
  Age: 35 Year
  Sex: Female
  Weight: 79 kg

DRUGS (14)
  1. PRIVIGEN [Suspect]
     Active Substance: HUMAN IMMUNOGLOBULIN G
     Indication: Scleroderma overlap syndrome
     Dosage: 2 G/KG, QMT
     Route: 042
     Dates: start: 20220319, end: 20220831
  2. PRIVIGEN [Suspect]
     Active Substance: HUMAN IMMUNOGLOBULIN G
     Indication: Off label use
  3. PLAQUENIL [Suspect]
     Active Substance: HYDROXYCHLOROQUINE SULFATE
     Indication: Scleroderma overlap syndrome
     Dosage: 400 MG, QD
     Route: 048
     Dates: start: 20210630
  4. PREDNISONE [Suspect]
     Active Substance: PREDNISONE
     Indication: Scleroderma overlap syndrome
     Dosage: 35 MG, QD
     Route: 048
     Dates: start: 20211124, end: 20220422
  5. PREDNISONE [Suspect]
     Active Substance: PREDNISONE
     Dosage: 30 MG, QD
     Route: 048
     Dates: start: 20220423, end: 20220502
  6. PREDNISONE [Suspect]
     Active Substance: PREDNISONE
     Dosage: 25 MG, QD
     Route: 048
     Dates: start: 20220503, end: 20220524
  7. PREDNISONE [Suspect]
     Active Substance: PREDNISONE
     Dosage: 20 MG, QD
     Route: 048
     Dates: start: 20220525, end: 20220607
  8. PREDNISONE [Suspect]
     Active Substance: PREDNISONE
     Dosage: 15 MG, QD
     Route: 048
     Dates: start: 20220608, end: 20220623
  9. PREDNISONE [Suspect]
     Active Substance: PREDNISONE
     Dosage: 14 MG, QD
     Route: 048
     Dates: start: 20220624, end: 20220828
  10. PREDNISONE [Suspect]
     Active Substance: PREDNISONE
     Dosage: 13 MG, QD
     Route: 048
     Dates: start: 20220829
  11. NIFEDIPINE [Concomitant]
     Active Substance: NIFEDIPINE
     Indication: Raynaud^s phenomenon
     Dosage: 20 MG, QD
     Route: 048
     Dates: start: 20211006, end: 20220113
  12. NIFEDIPINE [Concomitant]
     Active Substance: NIFEDIPINE
     Dosage: 30 MG, QD
     Route: 048
     Dates: start: 20220114, end: 202205
  13. NIFEDIPINE [Concomitant]
     Active Substance: NIFEDIPINE
     Dosage: 30 MG, QD
     Route: 048
     Dates: start: 20221115, end: 20230105
  14. NIFEDIPINE [Concomitant]
     Active Substance: NIFEDIPINE
     Dosage: 60 MG, QD
     Route: 048
     Dates: start: 20230106

REACTIONS (3)
  - Abortion spontaneous [Recovered/Resolved]
  - Maternal exposure during pregnancy [Unknown]
  - Off label use [Unknown]

NARRATIVE: CASE EVENT DATE: 20220319
